FAERS Safety Report 16529505 (Version 1)
Quarter: 2019Q3

REPORT INFORMATION
  Report Type: Spontaneous
  Country: US (occurrence: US)
  Receive Date: 20190703
  Receipt Date: 20190703
  Transmission Date: 20191004
  Serious: No
  Sender: FDA-Public Use
  Company Number: US-PURDUE-USA-2018-0144567

PATIENT
  Sex: Male

DRUGS (2)
  1. DRONABINOL CAPSULES [Suspect]
     Active Substance: DRONABINOL
     Indication: APPETITE DISORDER
     Dosage: 5 MG, TID
     Route: 048
     Dates: start: 20180822
  2. DRONABINOL CAPSULES [Suspect]
     Active Substance: DRONABINOL
     Dosage: 5 MG, DAILY
     Route: 048
     Dates: start: 20180821, end: 20180821

REACTIONS (3)
  - Somnolence [Not Recovered/Not Resolved]
  - Feeling abnormal [Not Recovered/Not Resolved]
  - Therapeutic product effect increased [Not Recovered/Not Resolved]
